FAERS Safety Report 9125811 (Version 1)
Quarter: 2013Q1

REPORT INFORMATION
  Report Type: Spontaneous
  Country: AU (occurrence: AU)
  Receive Date: 20130117
  Receipt Date: 20130117
  Transmission Date: 20140127
  Serious: Yes (Other)
  Sender: FDA-Public Use
  Company Number: AU-JNJFOC-20130106045

PATIENT
  Sex: Male

DRUGS (2)
  1. NICORETTE INHALER [Suspect]
     Indication: SMOKING CESSATION THERAPY
     Route: 055
  2. NICORETTE INHALER [Suspect]
     Indication: SMOKING CESSATION THERAPY
     Route: 055

REACTIONS (3)
  - Nicotine dependence [Unknown]
  - Intentional drug misuse [Not Recovered/Not Resolved]
  - Product packaging issue [Unknown]
